FAERS Safety Report 20745775 (Version 1)
Quarter: 2022Q2

REPORT INFORMATION
  Report Type: Spontaneous
  Country: US (occurrence: US)
  Receive Date: 20220425
  Receipt Date: 20220425
  Transmission Date: 20220721
  Serious: Yes (Other)
  Sender: FDA-Public Use
  Company Number: US-BRISTOL-MYERS SQUIBB COMPANY-2022-023638

PATIENT
  Age: 82 Year
  Sex: Male
  Weight: 81.6 kg

DRUGS (4)
  1. ELIQUIS [Suspect]
     Active Substance: APIXABAN
     Indication: Cerebrovascular accident prophylaxis
     Dosage: DOSE : ONE;     FREQ : TWICE A DAY
     Route: 048
  2. ELIQUIS [Suspect]
     Active Substance: APIXABAN
     Route: 065
  3. SOTALOL [Concomitant]
     Active Substance: SOTALOL
     Indication: Product used for unknown indication
     Route: 065
  4. MEMANTINE [Concomitant]
     Active Substance: MEMANTINE
     Indication: Memory impairment
     Route: 065

REACTIONS (1)
  - Internal haemorrhage [Unknown]

NARRATIVE: CASE EVENT DATE: 20220417
